FAERS Safety Report 12528426 (Version 1)
Quarter: 2016Q3

REPORT INFORMATION
  Report Type: Spontaneous
  Country: FR (occurrence: FR)
  Receive Date: 20160705
  Receipt Date: 20160705
  Transmission Date: 20161109
  Serious: Yes (Other)
  Sender: FDA-Public Use
  Company Number: FR-JNJFOC-20160627124

PATIENT
  Age: 30 Year

DRUGS (1)
  1. EPITOMAX [Suspect]
     Active Substance: TOPIRAMATE
     Indication: MIGRAINE PROPHYLAXIS
     Route: 048
     Dates: start: 20160607, end: 20160615

REACTIONS (5)
  - Visual acuity reduced [Recovered/Resolved]
  - Intraocular pressure increased [Recovered/Resolved]
  - Ocular discomfort [Recovered/Resolved]
  - Photophobia [Recovered/Resolved]
  - Lacrimation increased [Recovered/Resolved]

NARRATIVE: CASE EVENT DATE: 201606
